FAERS Safety Report 19774264 (Version 4)
Quarter: 2021Q4

REPORT INFORMATION
  Report Type: Spontaneous
  Country: MX (occurrence: MX)
  Receive Date: 20210901
  Receipt Date: 20211014
  Transmission Date: 20220303
  Serious: Yes (Death, Other)
  Sender: FDA-Public Use
  Company Number: MX-GILEAD-2021-0546249

PATIENT
  Sex: Male

DRUGS (1)
  1. VEKLURY [Suspect]
     Active Substance: REMDESIVIR
     Indication: COVID-19
     Dosage: 100 MG / 20 ML
     Route: 065

REACTIONS (3)
  - Pulmonary fibrosis [Fatal]
  - Endotracheal intubation [Fatal]
  - Counterfeit product administered [Unknown]
